FAERS Safety Report 8616438-2 (Version None)
Quarter: 2012Q3

REPORT INFORMATION
  Report Type: 
  Country: None (occurrence: None)
  Receive Date: 20120823
  Receipt Date: 20120816
  Transmission Date: 20120928
  Serious: Yes (Disabling)
  Sender: FDA-Public Use
  Company Number: FR-009507513-1208FRA007423

PATIENT

DRUGS (1)
  1. TIENAM 500MG/500MG, POUDRE POUR PERFUSION [Suspect]
     Indication: OSTEOARTHRITIS
     Dosage: 1 G, TID
     Route: 042
     Dates: start: 20120510, end: 20120719

REACTIONS (4)
  - THROMBOCYTOPENIA [None]
  - AGEUSIA [None]
  - SALIVARY HYPERSECRETION [None]
  - TOOTH MALFORMATION [None]
